FAERS Safety Report 18810237 (Version 2)
Quarter: 2021Q1

REPORT INFORMATION
  Report Type: Spontaneous
  Country: KR (occurrence: KR)
  Receive Date: 20210129
  Receipt Date: 20210212
  Transmission Date: 20210419
  Serious: Yes (Other)
  Sender: FDA-Public Use
  Company Number: KR-LUPIN PHARMACEUTICALS INC.-2021-00806

PATIENT
  Age: 69 Year
  Sex: Female

DRUGS (5)
  1. OXAZEPAM. [Suspect]
     Active Substance: OXAZEPAM
     Indication: SCHIZOPHRENIA
     Dosage: 30 MILLIGRAM
     Route: 065
  2. DULOXETINE. [Suspect]
     Active Substance: DULOXETINE
     Indication: SCHIZOPHRENIA
     Dosage: 40 MILLIGRAM
     Route: 065
  3. VALPROATE [Suspect]
     Active Substance: VALPROIC ACID
     Indication: SCHIZOPHRENIA
     Dosage: 500 MILLIGRAM
     Route: 065
  4. RISPERIDONE. [Suspect]
     Active Substance: RISPERIDONE
     Indication: SCHIZOPHRENIA
     Dosage: 3 MILLIGRAM
     Route: 065
  5. CHLORPROMAZINE. [Suspect]
     Active Substance: CHLORPROMAZINE
     Indication: SCHIZOPHRENIA
     Dosage: 250 MILLIGRAM
     Route: 065

REACTIONS (8)
  - Electrocardiogram QT prolonged [Unknown]
  - Orthostatic hypotension [Unknown]
  - Dry mouth [Unknown]
  - Constipation [Unknown]
  - Glucose tolerance impaired [Unknown]
  - Salivary hypersecretion [Unknown]
  - Weight increased [Unknown]
  - Vision blurred [Unknown]
